FAERS Safety Report 25122240 (Version 4)
Quarter: 2025Q2

REPORT INFORMATION
  Report Type: Report from Study
  Country: US (occurrence: US)
  Receive Date: 20250326
  Receipt Date: 20250602
  Transmission Date: 20250717
  Serious: No
  Sender: ACADIA PHARMACEUTICALS
  Company Number: US-ACADIA PHARMACEUTICALS INC.-ACA-2025-TRF-003304

PATIENT
  Sex: Female
  Weight: 50.794 kg

DRUGS (25)
  1. DAYBUE [Suspect]
     Active Substance: TROFINETIDE
     Indication: Rett syndrome
     Dosage: 60 MILLILITER, BID
     Dates: start: 202308
  2. DAYBUE [Suspect]
     Active Substance: TROFINETIDE
     Dosage: 60 MILLILITER, BID
     Dates: start: 20250423
  3. PEPCID [Concomitant]
     Active Substance: FAMOTIDINE
     Indication: Gastrooesophageal reflux disease
     Route: 048
     Dates: start: 20250514
  4. PRILOSEC [Concomitant]
     Active Substance: OMEPRAZOLE MAGNESIUM
     Indication: Gastrooesophageal reflux disease
  5. ALBUTEROL SULFATE [Concomitant]
     Active Substance: ALBUTEROL SULFATE
     Indication: Wheezing
     Dates: start: 20230927
  6. ALBUTEROL SULFATE [Concomitant]
     Active Substance: ALBUTEROL SULFATE
     Indication: Dyspnoea
  7. LIORESAL [Concomitant]
     Active Substance: BACLOFEN
     Indication: Muscle spasticity
     Route: 048
     Dates: start: 20241031
  8. PULMICORT TURBUHALER [Concomitant]
     Active Substance: BUDESONIDE
     Dates: start: 20240722
  9. TEGRETOL [Concomitant]
     Active Substance: CARBAMAZEPINE
     Indication: Seizure
     Dosage: PLEASE TAKE 1.5 TABLETS (300MG) IN THE MORNING, 1.5 TABLETS (300MG) IN THE AFTERNOON, AND 3 TABLETS
     Route: 048
     Dates: start: 20250506
  10. CARBAMIDE PEROXIDE [Concomitant]
     Active Substance: CARBAMIDE PEROXIDE
     Dates: start: 20250210
  11. CETIRIZINE HCL [Concomitant]
     Active Substance: CETIRIZINE HYDROCHLORIDE
     Dosage: TAKE ONE TAB DAILY
     Route: 048
     Dates: start: 20220406
  12. PERIOGARD [Concomitant]
     Active Substance: CHLORHEXIDINE GLUCONATE
     Route: 048
     Dates: start: 20240718
  13. CIPROFLOXACIN\DEXAMETHASONE [Concomitant]
     Active Substance: CIPROFLOXACIN\DEXAMETHASONE
     Dates: start: 20250107
  14. LOTRIMIN AF [CLOTRIMAZOLE] [Concomitant]
     Route: 061
     Dates: start: 20210112
  15. FOLIC ACID [Concomitant]
     Active Substance: FOLIC ACID
     Dosage: ADMINISTER 1 TABLET INTO G TUBE IN THE MORNING. - G TUBE
     Dates: start: 20241018
  16. LEVETIRACETAM [Concomitant]
     Active Substance: LEVETIRACETAM
     Dosage: ADMINISTER 2 TABLETS INTO G TUBE IN THE MORNING AND 2 TABLETS BEFORE BEDTIME. - G TUBE
     Dates: start: 20250506
  17. IMODIUM [Concomitant]
     Active Substance: LOPERAMIDE HYDROCHLORIDE
     Indication: Diarrhoea
     Route: 048
     Dates: start: 20230925
  18. ATIVAN [Concomitant]
     Active Substance: LORAZEPAM
     Indication: Seizure cluster
     Dates: start: 20241007
  19. PROVERA [Concomitant]
     Active Substance: MEDROXYPROGESTERONE ACETATE
     Dosage: ADMINISTER 1 TABLET INTO PEG TUBE IN THE MORNING. - PEG TUBE
     Route: 048
     Dates: start: 20241118
  20. METOPROLOL TARTRATE [Concomitant]
     Active Substance: METOPROLOL TARTRATE
     Dosage: ADMINISTER 1 TABLET INTO PEG TUBE EVERY 12 HOURS AS DIRECTED
     Route: 048
     Dates: start: 20250509
  21. KETOVIE 4:1 [Concomitant]
     Route: 048
     Dates: start: 20250207
  22. NYSTATIN [Concomitant]
     Active Substance: NYSTATIN
     Indication: Fungal infection
     Route: 061
     Dates: start: 20221228
  23. MIRALAX [Concomitant]
     Active Substance: POLYETHYLENE GLYCOL 3350
     Indication: Constipation
     Dates: start: 20181213
  24. SODIUM CHLORIDE [Concomitant]
     Active Substance: SODIUM CHLORIDE
     Dates: start: 20210727
  25. ZINC OXIDE [Concomitant]
     Active Substance: ZINC OXIDE
     Indication: Skin irritation
     Route: 061
     Dates: start: 20151205

REACTIONS (1)
  - Diarrhoea [Not Recovered/Not Resolved]
